FAERS Safety Report 4565041-2 (Version None)
Quarter: 2005Q1

REPORT INFORMATION
  Report Type: 
  Country: None (occurrence: None)
  Receive Date: 20050126
  Receipt Date: 20050117
  Transmission Date: 20050727
  Serious: Yes (Hospitalization)
  Sender: FDA-Public Use
  Company Number: 2005015149

PATIENT
  Age: 57 Year
  Sex: Male
  Weight: 73 kg

DRUGS (3)
  1. DOXAZOSIN (DOXAZOSIN0 [Suspect]
     Indication: HYPERTENSION
     Dosage: (8 MG, 1 IN 1 D), ORAL  LONG TERM
     Route: 048
  2. MODURETIC ^MSD^ (AMILORIDE HYDROCHLORIDE, HYDROCHLOROTHIAZIDE) [Concomitant]
  3. BISOPROLOL FUMARATE [Concomitant]

REACTIONS (6)
  - ANAL POLYP [None]
  - APLASIA [None]
  - COLONIC POLYP [None]
  - CONSTIPATION [None]
  - GRANULOMA [None]
  - HAEMATOCHEZIA [None]
